FAERS Safety Report 5411976-8 (Version None)
Quarter: 2007Q3

REPORT INFORMATION
  Report Type: 
  Country: None (occurrence: None)
  Receive Date: 20070810
  Receipt Date: 20070810
  Transmission Date: 20080115
  Serious: No
  Sender: FDA-Public Use
  Company Number: None

PATIENT
  Age: 48 Year
  Sex: Male
  Weight: 74.8435 kg

DRUGS (1)
  1. SEPTOCAINE [Suspect]
     Indication: DENTAL TREATMENT
     Dosage: 1.8CC  ONE  DENTAL
     Route: 004
     Dates: start: 20070625, end: 20070625

REACTIONS (1)
  - PARAESTHESIA [None]
